FAERS Safety Report 9382440 (Version 1)
Quarter: 2013Q3

REPORT INFORMATION
  Report Type: Spontaneous
  Country: US (occurrence: US)
  Receive Date: 20130703
  Receipt Date: 20130703
  Transmission Date: 20140515
  Serious: No
  Sender: FDA-Public Use
  Company Number: US-UPSHER-SMITH LABORATORIES, INC.-12003038

PATIENT
  Sex: Female

DRUGS (2)
  1. DIVIGEL [Suspect]
     Indication: HOT FLUSH
     Dosage: UNK
     Dates: start: 201210
  2. NOT REPORTED [Concomitant]

REACTIONS (5)
  - Disturbance in attention [Not Recovered/Not Resolved]
  - Hyperphagia [Not Recovered/Not Resolved]
  - Weight increased [Not Recovered/Not Resolved]
  - Loss of libido [Not Recovered/Not Resolved]
  - Fatigue [Not Recovered/Not Resolved]
